FAERS Safety Report 15671643 (Version 2)
Quarter: 2019Q3

REPORT INFORMATION
  Report Type: Report from Study
  Country: US (occurrence: US)
  Receive Date: 20181129
  Receipt Date: 20190930
  Transmission Date: 20191004
  Serious: Yes (Life-Threatening)
  Sender: FDA-Public Use
  Company Number: US-TESAROUBC-US-2018TSO04438

PATIENT
  Sex: Female
  Weight: 54 kg

DRUGS (4)
  1. GABAPENTIN. [Suspect]
     Active Substance: GABAPENTIN
     Dosage: 300 MG, 1 BID
  2. NIRAPARIB CAPSULE [Suspect]
     Active Substance: NIRAPARIB
     Dosage: 100 MG, QHS (BEDTIME) WITHOUT FOOD
     Dates: start: 20181024
  3. GABAPENTIN. [Suspect]
     Active Substance: GABAPENTIN
     Indication: PRODUCT USED FOR UNKNOWN INDICATION
     Dosage: 300 MG, 2HS
  4. NIRAPARIB CAPSULE [Suspect]
     Active Substance: NIRAPARIB
     Indication: OVARIAN CANCER
     Dosage: 200 MG, QD
     Route: 048
     Dates: start: 20180820, end: 20180910

REACTIONS (7)
  - Nodule [Unknown]
  - Platelet count decreased [Unknown]
  - Paranasal sinus hypersecretion [Unknown]
  - Carbohydrate antigen 125 increased [Recovering/Resolving]
  - Cough [Not Recovered/Not Resolved]
  - Peripheral swelling [Recovered/Resolved]
  - Product dose omission [Unknown]
